FAERS Safety Report 20159547 (Version 2)
Quarter: 2021Q4

REPORT INFORMATION
  Report Type: Spontaneous
  Country: DK (occurrence: DK)
  Receive Date: 20211208
  Receipt Date: 20211211
  Transmission Date: 20220303
  Serious: Yes (Hospitalization)
  Sender: FDA-Public Use
  Company Number: None

PATIENT
  Age: 48 Year
  Sex: Female
  Weight: 82 kg

DRUGS (3)
  1. ATORVASTATIN [Suspect]
     Active Substance: ATORVASTATIN
     Indication: Cardiovascular event prophylaxis
     Dosage: 40 MG
     Dates: start: 20201007, end: 20210208
  2. CARVEDILOL [Suspect]
     Active Substance: CARVEDILOL
     Indication: Hypertension
     Dosage: ^KRKA^,UNIT DOSE:25MILLIGRAM
     Route: 048
     Dates: start: 20201007, end: 20210226
  3. CLOPIDOGREL [Concomitant]
     Active Substance: CLOPIDOGREL BISULFATE
     Indication: Thrombosis
     Dates: start: 20201007

REACTIONS (5)
  - Angina pectoris [Not Recovered/Not Resolved]
  - Cough [Recovered/Resolved]
  - Tremor [Recovering/Resolving]
  - Dizziness [Recovering/Resolving]
  - Dyspnoea [Recovered/Resolved]

NARRATIVE: CASE EVENT DATE: 20201010
